FAERS Safety Report 16014404 (Version 1)
Quarter: 2019Q1

REPORT INFORMATION
  Report Type: Spontaneous
  Country: US (occurrence: US)
  Receive Date: 20190227
  Receipt Date: 20190227
  Transmission Date: 20190418
  Serious: No
  Sender: FDA-Public Use
  Company Number: US-SUNOVION-2019SUN000807

PATIENT
  Sex: Female

DRUGS (2)
  1. LATUDA [Suspect]
     Active Substance: LURASIDONE HYDROCHLORIDE
     Dosage: 120 MG, QD
     Route: 048
  2. LATUDA [Suspect]
     Active Substance: LURASIDONE HYDROCHLORIDE
     Dosage: 60 MG AM AND 40 MG PM
     Route: 048
     Dates: start: 2012

REACTIONS (6)
  - Soliloquy [Unknown]
  - Crying [Unknown]
  - Affect lability [Unknown]
  - Emotional disorder [Unknown]
  - Off label use [Unknown]
  - Akathisia [Unknown]
